FAERS Safety Report 11814173 (Version 1)
Quarter: 2015Q4

REPORT INFORMATION
  Report Type: Spontaneous
  Country: IT (occurrence: IT)
  Receive Date: 20151209
  Receipt Date: 20151209
  Transmission Date: 20160305
  Serious: Yes (Other)
  Sender: FDA-Public Use
  Company Number: IT-EISAI MEDICAL RESEARCH-EC-2015-012588

PATIENT
  Age: 66 Year
  Sex: Female
  Weight: 59 kg

DRUGS (5)
  1. PANTORC [Concomitant]
     Active Substance: PANTOPRAZOLE SODIUM
     Indication: PREMEDICATION
     Route: 042
     Dates: start: 20151020, end: 20151029
  2. HALAVEN [Suspect]
     Active Substance: ERIBULIN MESYLATE
     Indication: BREAST CANCER
     Route: 040
     Dates: start: 20151020, end: 20151029
  3. HALAVEN [Suspect]
     Active Substance: ERIBULIN MESYLATE
     Route: 040
     Dates: start: 20151119
  4. LIMICAN [Concomitant]
     Active Substance: ALIZAPRIDE HYDROCHLORIDE
     Indication: PREMEDICATION
     Route: 042
     Dates: start: 20151020, end: 20151029
  5. DESAMETASONE FOSFATO HOSPIRA [Concomitant]
     Indication: PREMEDICATION
     Route: 042
     Dates: start: 20151020, end: 20151029

REACTIONS (1)
  - Hepatotoxicity [Recovering/Resolving]

NARRATIVE: CASE EVENT DATE: 20151112
